FAERS Safety Report 12354980 (Version 1)
Quarter: 2016Q2

REPORT INFORMATION
  Report Type: Report from Study
  Country: US (occurrence: US)
  Receive Date: 20160511
  Receipt Date: 20160511
  Transmission Date: 20160815
  Serious: Yes (Hospitalization)
  Sender: FDA-Public Use
  Company Number: US-AMGEN-USACT2016057399

PATIENT
  Age: 57 Year
  Sex: Female
  Weight: 108 kg

DRUGS (7)
  1. SINGULAIR [Concomitant]
     Active Substance: MONTELUKAST SODIUM
     Dosage: 10 MG, UNK
     Dates: start: 20160217
  2. ZOLPIDEM [Concomitant]
     Active Substance: ZOLPIDEM\ZOLPIDEM TARTRATE
     Dosage: 5 MG, UNK
     Dates: start: 20160217
  3. ASMANEX [Concomitant]
     Active Substance: MOMETASONE FUROATE
     Dosage: 220 MG, UNK
     Route: 055
     Dates: start: 20160217
  4. PARACETAMOL [Concomitant]
     Active Substance: ACETAMINOPHEN
     Dosage: 500 MG, UNK
     Dates: start: 20160217
  5. ACYCLOVIR. [Concomitant]
     Active Substance: ACYCLOVIR
     Dosage: 400 MG, UNK
     Dates: start: 20160217
  6. CARFILZOMIB [Suspect]
     Active Substance: CARFILZOMIB
     Indication: PLASMA CELL MYELOMA
     Dosage: 70 MG/M2, PER CHEMO REGIM
     Route: 042
     Dates: start: 20160224, end: 20160427
  7. COLACE [Concomitant]
     Active Substance: DOCUSATE SODIUM
     Dosage: 100 MG, UNK
     Dates: start: 20160217

REACTIONS (2)
  - Pulmonary hypertension [Not Recovered/Not Resolved]
  - Right ventricular failure [Not Recovered/Not Resolved]

NARRATIVE: CASE EVENT DATE: 20160501
